FAERS Safety Report 9375018 (Version 3)
Quarter: 2013Q3

REPORT INFORMATION
  Report Type: Report from Study
  Country: US (occurrence: US)
  Receive Date: 20130628
  Receipt Date: 20130816
  Transmission Date: 20140515
  Serious: Yes (Hospitalization, Other)
  Sender: FDA-Public Use
  Company Number: US-PURDUE-USA-2013-0103892

PATIENT
  Age: 40 Year
  Sex: Female
  Weight: 65.76 kg

DRUGS (7)
  1. OXYCONTIN (NDA 22-272) [Suspect]
     Indication: PAIN
     Dosage: 20 MG, Q8H
     Route: 048
     Dates: start: 2006
  2. OXYCONTIN (NDA 22-272) [Suspect]
     Dosage: 40 MG, Q8H
     Dates: start: 201306
  3. OXYCODONE HYDROCHLORIDE (SIMILAR TO NDA 22-272) [Concomitant]
     Indication: PAIN
     Dosage: 10 MG, TID PRN
     Route: 048
  4. KEPPRA [Concomitant]
     Indication: PAIN
     Dosage: 500 MG, BID
     Route: 048
  5. BACLOFEN [Concomitant]
     Indication: PAIN
     Dosage: 10 MG, TID
     Route: 048
  6. GABAPENTIN [Concomitant]
     Indication: PRODUCT USED FOR UNKNOWN INDICATION
     Dosage: UNK MG, TID
     Route: 048
  7. MELOXICAM [Concomitant]
     Indication: PRODUCT USED FOR UNKNOWN INDICATION
     Dosage: 15 MG, UNK
     Route: 048

REACTIONS (3)
  - Spinal fusion surgery [Recovered/Resolved]
  - Musculoskeletal disorder [Unknown]
  - Fatigue [Not Recovered/Not Resolved]
